FAERS Safety Report 10434492 (Version 2)
Quarter: 2015Q1

REPORT INFORMATION
  Report Type: Spontaneous
  Country: BR (occurrence: BR)
  Receive Date: 20140905
  Receipt Date: 20150211
  Transmission Date: 20150720
  Serious: Yes (Other)
  Sender: FDA-Public Use
  Company Number: BR-ABBVIE-14P-020-1280293-00

PATIENT
  Age: 32 Year
  Sex: Male

DRUGS (6)
  1. DEPAKENE [Suspect]
     Active Substance: VALPROIC ACID
     Indication: SCREAMING
     Route: 048
  2. ALCOHOL. [Suspect]
     Active Substance: ALCOHOL
     Indication: PRODUCT USED FOR UNKNOWN INDICATION
     Route: 065
  3. DEPAKENE [Suspect]
     Active Substance: VALPROIC ACID
     Indication: SPEECH DISORDER
     Route: 048
  4. DEPAKENE [Suspect]
     Active Substance: VALPROIC ACID
     Indication: SOMNAMBULISM
     Route: 048
  5. DEPAKENE [Suspect]
     Active Substance: VALPROIC ACID
     Indication: MIDDLE INSOMNIA
     Dosage: AFTER DINNER; DAILY DOSE: 500 MILLIGRAM
     Route: 048
     Dates: start: 20140718, end: 201412
  6. DEPAKENE [Suspect]
     Active Substance: VALPROIC ACID
     Indication: ABNORMAL BEHAVIOUR
     Route: 048

REACTIONS (6)
  - Abnormal behaviour [Not Recovered/Not Resolved]
  - Drug ineffective [Unknown]
  - Speech disorder [Not Recovered/Not Resolved]
  - Screaming [Not Recovered/Not Resolved]
  - Somnambulism [Not Recovered/Not Resolved]
  - Middle insomnia [Not Recovered/Not Resolved]

NARRATIVE: CASE EVENT DATE: 201408
